APPROVED DRUG PRODUCT: TARKA
Active Ingredient: TRANDOLAPRIL; VERAPAMIL HYDROCHLORIDE
Strength: 2MG;240MG
Dosage Form/Route: TABLET, EXTENDED RELEASE;ORAL
Application: N020591 | Product #004
Applicant: ABBVIE INC
Approved: Oct 22, 1996 | RLD: Yes | RS: No | Type: DISCN